FAERS Safety Report 6004021-7 (Version None)
Quarter: 2008Q4

REPORT INFORMATION
  Report Type: 
  Country: None (occurrence: None)
  Receive Date: 20081216
  Receipt Date: 20081210
  Transmission Date: 20090506
  Serious: Yes (Hospitalization, Other)
  Sender: FDA-Public Use
  Company Number: A0731986B

PATIENT
  Age: 52 Year
  Sex: Female
  Weight: 94 kg

DRUGS (3)
  1. LAPATINIB [Suspect]
     Dosage: 1500MG PER DAY
     Route: 048
     Dates: start: 20080520
  2. CISPLATIN [Suspect]
     Dosage: 100MGM2 CYCLIC
     Route: 042
  3. RADIATION [Suspect]
     Route: 061

REACTIONS (3)
  - DYSPHAGIA [None]
  - HYPOCALCAEMIA [None]
  - LEUKOPENIA [None]
